FAERS Safety Report 4370582-7 (Version None)
Quarter: 2004Q2

REPORT INFORMATION
  Report Type: 
  Country: None (occurrence: None)
  Receive Date: 20040521
  Receipt Date: 20040220
  Transmission Date: 20050107
  Serious: Yes (Life-Threatening)
  Sender: FDA-Public Use
  Company Number: 200310650BFR

PATIENT
  Age: 9 Year
  Sex: Female
  Weight: 30 kg

DRUGS (4)
  1. CIPROFLOXACIN [Suspect]
     Dosage: 500 MG, TOTAL DAILY, ORAL
     Route: 048
     Dates: start: 20031029, end: 20031117
  2. VENTOLIN [Suspect]
     Dates: start: 20031029, end: 20031117
  3. CEFPODOXIME PROXETIL [Suspect]
     Dosage: 200 MG, TOTAL DAILY, ORAL
     Route: 048
     Dates: start: 20031029, end: 20031117
  4. ACETAMINOPHEN [Suspect]
     Dosage: 250 MG, TOTAL DAILY
     Dates: start: 20031029

REACTIONS (9)
  - DERMATITIS BULLOUS [None]
  - EYELID OEDEMA [None]
  - FACE OEDEMA [None]
  - LOCALISED OEDEMA [None]
  - MUCOSAL INFLAMMATION [None]
  - PYREXIA [None]
  - RASH VESICULAR [None]
  - SKIN LESION [None]
  - STEVENS-JOHNSON SYNDROME [None]
